FAERS Safety Report 6068476-4 (Version None)
Quarter: 2009Q1

REPORT INFORMATION
  Report Type: 
  Country: None (occurrence: None)
  Receive Date: 20090206
  Receipt Date: 20090129
  Transmission Date: 20090719
  Serious: Yes (Hospitalization, Other)
  Sender: FDA-Public Use
  Company Number: GR-PFIZER INC-2009163210

PATIENT

DRUGS (7)
  1. AXITINIB [Suspect]
     Dosage: 3 MG, 2X/DAY
     Route: 048
     Dates: start: 20090118
  2. AMLODIPINE BESILATE [Suspect]
     Dosage: UNK
     Route: 048
     Dates: start: 20081229, end: 20090128
  3. IRBESARTAN [Suspect]
     Dosage: UNK
     Route: 048
     Dates: start: 20081229, end: 20090128
  4. NEBIVOLOL [Suspect]
     Dosage: UNK
     Route: 048
     Dates: start: 20081229, end: 20090128
  5. FUROSEMIDE [Concomitant]
     Dosage: UNK
     Route: 048
     Dates: end: 20090129
  6. GLIMEPIRIDE [Concomitant]
     Dosage: UNK
     Route: 048
  7. HYDROCHLOROTHIAZIDE [Concomitant]
     Dosage: UNK
     Route: 048
     Dates: start: 20081229, end: 20090128

REACTIONS (3)
  - BRADYCARDIA [None]
  - FATIGUE [None]
  - HYPERKALAEMIA [None]
